FAERS Safety Report 7795129-4 (Version None)
Quarter: 2011Q3

REPORT INFORMATION
  Report Type: 
  Country: None (occurrence: None)
  Receive Date: 20110930
  Receipt Date: 20110916
  Transmission Date: 20111222
  Serious: Yes (Life-Threatening, Other)
  Sender: FDA-Public Use
  Company Number: FK201101972

PATIENT
  Age: 34 Year
  Sex: Female
  Weight: 65.6 kg

DRUGS (9)
  1. NOXAFIL [Suspect]
     Indication: HEPATOSPLENIC CANDIDIASIS
     Dosage: 40 MG, ORAL SUSPENSION 4 XPER DAY, ORAL
     Route: 048
     Dates: start: 20071019, end: 20080125
  2. ONDANSETRON [Suspect]
     Indication: PRODUCT USED FOR UNKNOWN INDICATION
     Dates: start: 20080122, end: 20080125
  3. ETOPOSIDE [Suspect]
     Indication: PRODUCT USED FOR UNKNOWN INDICATION
  4. CYTARABINE [Suspect]
     Indication: PRODUCT USED FOR UNKNOWN INDICATION
  5. ACYCLOVIR [Suspect]
     Indication: PRODUCT USED FOR UNKNOWN INDICATION
     Dosage: 200 MG, ORAL
     Route: 048
  6. VOGALENE (METOPIMAZINE) [Suspect]
     Indication: PRODUCT USED FOR UNKNOWN INDICATION
  7. POTASSIUM CHLORIDE [Suspect]
     Indication: PRODUCT USED FOR UNKNOWN INDICATION
     Dosage: 750 MG, ORAL
     Route: 048
  8. ALLOPURINOL [Suspect]
     Indication: PRODUCT USED FOR UNKNOWN INDICATION
     Dosage: 100 MG, ORAL
     Route: 048
  9. PANTOPRAZOLE [Suspect]
     Indication: PRODUCT USED FOR UNKNOWN INDICATION
     Dosage: 40 MG
     Dates: start: 20080122, end: 20080125

REACTIONS (7)
  - DRUG INTERACTION [None]
  - ATRIOVENTRICULAR BLOCK SECOND DEGREE [None]
  - SINOATRIAL BLOCK [None]
  - SINUS BRADYCARDIA [None]
  - NODAL ARRHYTHMIA [None]
  - SINUS TACHYCARDIA [None]
  - ARRHYTHMIA SUPRAVENTRICULAR [None]
